FAERS Safety Report 9195819 (Version 2)
Quarter: 2013Q2

REPORT INFORMATION
  Report Type: Spontaneous
  Country: None (occurrence: None)
  Receive Date: 20130319
  Receipt Date: 20130404
  Transmission Date: 20140414
  Serious: Yes (Hospitalization, Other)
  Sender: FDA-Public Use
  Company Number: 2013PROUSA02625

PATIENT
  Age: 64 Year
  Sex: Male
  Weight: 88.4 kg

DRUGS (9)
  1. PROVENGE [Suspect]
     Indication: PROSTATE CANCER METASTATIC
     Dosage: SINGLE
     Route: 042
     Dates: start: 20130221, end: 20130221
  2. ZOMETA (ZOLEDRONIC ACID) [Concomitant]
  3. NIACIN (NICOTINIC ACID) [Concomitant]
  4. CALCET (CALCIUM CARBONATE, CALCIUM GLUCONATE, CALCIUM LACTATE, ERGOCALCIFEROL) [Concomitant]
  5. ASPIRIN (ACETYLSALICYLIC ACID) [Concomitant]
  6. TUMS (CALCIUM CARBONATE, MAGNESIUM CARBONATE, MAGNESIUM TRISILICATE) [Concomitant]
  7. VITAMIN B 12 (VITAMIN B NOS) [Concomitant]
  8. TOPROL (METOPROLOL SUCCINATE) [Concomitant]
  9. MULTIVITAMIN (VITAMINS NOS) [Concomitant]

REACTIONS (2)
  - Clostridium difficile colitis [None]
  - Conjunctival pallor [None]
